FAERS Safety Report 11342594 (Version 1)
Quarter: 2015Q3

REPORT INFORMATION
  Report Type: Spontaneous
  Country: US (occurrence: US)
  Receive Date: 20150805
  Receipt Date: 20150805
  Transmission Date: 20151125
  Serious: No
  Sender: FDA-Public Use
  Company Number: US-BAUSCH-2015ST000008

PATIENT
  Age: 62 Year
  Sex: Male

DRUGS (1)
  1. GLUMETZA [Suspect]
     Active Substance: METFORMIN HYDROCHLORIDE
     Indication: DIABETES MELLITUS
     Dosage: 1000 MG, TWICE A DAY
     Route: 048
     Dates: start: 201408

REACTIONS (3)
  - Blood glucose abnormal [Unknown]
  - Blood glucose increased [Unknown]
  - Drug effect decreased [Not Recovered/Not Resolved]

NARRATIVE: CASE EVENT DATE: 20141214
